FAERS Safety Report 25351518 (Version 3)
Quarter: 2025Q2

REPORT INFORMATION
  Report Type: Spontaneous
  Country: US (occurrence: US)
  Receive Date: 20250523
  Receipt Date: 20250627
  Transmission Date: 20250716
  Serious: No
  Sender: PFIZER
  Company Number: US-PFIZER INC-202500105235

PATIENT
  Age: 74 Year
  Sex: Male

DRUGS (1)
  1. BENEFIX [Suspect]
     Active Substance: COAGULATION FACTOR IX RECOMBINANT HUMAN\ISOPROPYL ALCOHOL
     Dosage: INFUSE BENEFIX 4800 UNITS (+/-10%) = 50 UNITS/KG X 1 DAILY FOR TEN (10) DAYS

REACTIONS (1)
  - Tooth extraction [Unknown]
